FAERS Safety Report 11286011 (Version 2)
Quarter: 2015Q3

REPORT INFORMATION
  Report Type: Spontaneous
  Country: GB (occurrence: GB)
  Receive Date: 20150721
  Receipt Date: 20150806
  Transmission Date: 20151125
  Serious: Yes (Death)
  Sender: FDA-Public Use
  Company Number: GB-ACCORD-032238

PATIENT
  Age: 49 Year
  Sex: Male

DRUGS (3)
  1. SIMVASTATIN. [Concomitant]
     Active Substance: SIMVASTATIN
  2. LISINOPRIL. [Concomitant]
     Active Substance: LISINOPRIL
  3. CLOPIDOGREL [Suspect]
     Active Substance: CLOPIDOGREL BISULFATE
     Indication: TRANSIENT ISCHAEMIC ATTACK
     Route: 048
     Dates: start: 20141126

REACTIONS (1)
  - Subdural haematoma [Fatal]

NARRATIVE: CASE EVENT DATE: 20150523
